FAERS Safety Report 9916163 (Version 1)
Quarter: 2014Q1

REPORT INFORMATION
  Report Type: Spontaneous
  Country: US (occurrence: None)
  Receive Date: 20140220
  Receipt Date: 20140220
  Transmission Date: 20141002
  Serious: Yes (Hospitalization)
  Sender: FDA-Public Use
  Company Number: None

PATIENT
  Age: 46 Year
  Sex: Male
  Weight: 86.18 kg

DRUGS (1)
  1. AXIRON [Suspect]
     Indication: BLOOD TESTOSTERONE DECREASED
     Dosage: 1DOSE A DAY, ONCE DAILY, --
     Dates: start: 20130307, end: 20130310

REACTIONS (2)
  - Chest pain [None]
  - Insomnia [None]
